FAERS Safety Report 9787714 (Version 1)
Quarter: 2013Q4

REPORT INFORMATION
  Report Type: Spontaneous
  Country: None (occurrence: None)
  Receive Date: 20131226
  Receipt Date: 20131226
  Transmission Date: 20140711
  Serious: Yes (Other)
  Sender: FDA-Public Use
  Company Number: FK201305411

PATIENT
  Age: 17 Year
  Sex: Female

DRUGS (4)
  1. IFOSFAMIDE [Suspect]
     Indication: OSTEOSARCOMA
     Dosage: 3000 MG/M2, 1 D
  2. METHOTREXATE (METHOTREXATE) (METHOTREXATE) [Suspect]
     Indication: OSTEOSARCOMA
     Dosage: 12000 MG/M2
  3. FOLINIC ACID (FOLINIC ACID) [Concomitant]
  4. UROMITEXAN (MESNA) [Concomitant]

REACTIONS (6)
  - Encephalopathy [None]
  - Tinnitus [None]
  - Dizziness [None]
  - Deafness bilateral [None]
  - Cerebellar syndrome [None]
  - Neurotoxicity [None]
